FAERS Safety Report 9027157 (Version 1)
Quarter: 2013Q1

REPORT INFORMATION
  Report Type: Spontaneous
  Country: US (occurrence: US)
  Receive Date: 20130123
  Receipt Date: 20130123
  Transmission Date: 20140127
  Serious: Yes (Death, Hospitalization)
  Sender: FDA-Public Use
  Company Number: US-GLAXOSMITHKLINE-A0998597A

PATIENT
  Age: 68 Year
  Sex: Female

DRUGS (14)
  1. TYKERB [Suspect]
     Indication: BREAST CANCER METASTATIC
     Dosage: 1250MG PER DAY
     Route: 048
     Dates: start: 20090819
  2. XELODA [Suspect]
     Indication: BREAST CANCER METASTATIC
     Dates: start: 20090819
  3. FEMARA [Suspect]
     Indication: BREAST CANCER METASTATIC
     Dates: start: 201108
  4. AROMASIN [Suspect]
     Indication: BREAST CANCER METASTATIC
     Dosage: 25MG PER DAY
     Route: 065
     Dates: start: 201205
  5. ULTRAM [Concomitant]
     Dosage: 50MG AS REQUIRED
     Route: 048
  6. EXELON [Concomitant]
  7. LISINOPRIL [Concomitant]
  8. MILK OF MAGNESIA [Concomitant]
  9. NAMENDA [Concomitant]
     Route: 048
  10. OMEPRAZOLE [Concomitant]
     Dosage: 20MG PER DAY
     Route: 048
  11. TOPROL XL [Concomitant]
     Route: 048
  12. TYLENOL ARTHRITIS [Concomitant]
     Dosage: 650MG PER DAY
     Route: 048
  13. KCL [Concomitant]
     Dosage: 15MEQ PER DAY
     Route: 048
  14. OSCAL [Concomitant]

REACTIONS (9)
  - Death [Fatal]
  - Hip fracture [Unknown]
  - Clavicle fracture [Unknown]
  - Abasia [Unknown]
  - Fall [Unknown]
  - Head injury [Unknown]
  - Dysphagia [Unknown]
  - Impaired healing [Unknown]
  - Disease progression [Unknown]
